FAERS Safety Report 5146419-5 (Version None)
Quarter: 2006Q4

REPORT INFORMATION
  Report Type: 
  Country: None (occurrence: None)
  Receive Date: 20061102
  Receipt Date: 20061020
  Transmission Date: 20070319
  Serious: Yes (Other)
  Sender: FDA-Public Use
  Company Number: 2006128467

PATIENT
  Age: 81 Year
  Sex: Male
  Weight: 80.7403 kg

DRUGS (1)
  1. SUTENT [Suspect]
     Indication: PROSTATE CANCER
     Dosage: 50 MG (50 MG, 1 IN 1 D), ORAL
     Route: 048
     Dates: start: 20060913

REACTIONS (4)
  - CONSTIPATION [None]
  - PROCTITIS [None]
  - RECALL PHENOMENON [None]
  - RECTAL HAEMORRHAGE [None]
